FAERS Safety Report 16522461 (Version 2)
Quarter: 2019Q3

REPORT INFORMATION
  Report Type: Spontaneous
  Country: US (occurrence: US)
  Receive Date: 20190703
  Receipt Date: 20190812
  Transmission Date: 20191004
  Serious: Yes (Hospitalization)
  Sender: FDA-Public Use
  Company Number: US-PFIZER INC-2019281709

PATIENT
  Age: 15 Year
  Sex: Male

DRUGS (1)
  1. XYNTHA [Suspect]
     Active Substance: ANTIHEMOPHILIC FACTOR, HUMAN RECOMBINANT RESIDUES 743-1636 DELETED
     Dosage: 50 UG/KG, ALTERNATE DAY (EVERY OTHER DAY)

REACTIONS (2)
  - Off label use [Unknown]
  - Gastrointestinal haemorrhage [Unknown]
